FAERS Safety Report 5159831-5 (Version None)
Quarter: 2006Q4

REPORT INFORMATION
  Report Type: 
  Country: None (occurrence: None)
  Receive Date: 20061129
  Receipt Date: 20060131
  Transmission Date: 20070319
  Serious: No
  Sender: FDA-Public Use
  Company Number: US-GLAXOSMITHKLINE-A0591700A

PATIENT
  Age: 37 Year
  Sex: Female

DRUGS (3)
  1. WELLBUTRIN SR [Suspect]
     Indication: DRUG USE FOR UNKNOWN INDICATION
     Dosage: 100MG PER DAY
     Route: 048
     Dates: start: 20040901
  2. ORAL CONTRACEPTIVE [Concomitant]
  3. LEXAPRO [Concomitant]
     Route: 048
     Dates: start: 20050701

REACTIONS (2)
  - DYSMENORRHOEA [None]
  - PREMENSTRUAL SYNDROME [None]
